FAERS Safety Report 7366733-2 (Version None)
Quarter: 2011Q1

REPORT INFORMATION
  Report Type: 
  Country: None (occurrence: None)
  Receive Date: 20110322
  Receipt Date: 20110317
  Transmission Date: 20110831
  Serious: Yes (Hospitalization, Other)
  Sender: FDA-Public Use
  Company Number: US-ROCHE-719255

PATIENT
  Sex: Male
  Weight: 90.7 kg

DRUGS (3)
  1. ACCUTANE [Suspect]
     Route: 065
     Dates: start: 19980727, end: 19980824
  2. ACCUTANE [Suspect]
     Route: 065
     Dates: start: 19980824, end: 19980925
  3. ACCUTANE [Suspect]
     Route: 065
     Dates: start: 19980925, end: 19981201

REACTIONS (7)
  - EPISTAXIS [None]
  - DRY SKIN [None]
  - MYALGIA [None]
  - COLITIS ULCERATIVE [None]
  - SMALL INTESTINAL OBSTRUCTION [None]
  - INFLAMMATORY BOWEL DISEASE [None]
  - CHEILITIS [None]
